FAERS Safety Report 5862182-4 (Version None)
Quarter: 2008Q3

REPORT INFORMATION
  Report Type: 
  Country: None (occurrence: None)
  Receive Date: 20080828
  Receipt Date: 20080620
  Transmission Date: 20090109
  Serious: No
  Sender: FDA-Public Use
  Company Number: A0735419A

PATIENT
  Sex: Male

DRUGS (1)
  1. ACYCLOVIR [Suspect]
     Dosage: 850MG THREE TIMES PER DAY
     Route: 048

REACTIONS (1)
  - DRUG INEFFECTIVE [None]
